FAERS Safety Report 11071120 (Version 1)
Quarter: 2015Q2

REPORT INFORMATION
  Report Type: Spontaneous
  Country: US (occurrence: None)
  Receive Date: 20150427
  Receipt Date: 20150427
  Transmission Date: 20150821
  Serious: No
  Sender: FDA-Public Use
  Company Number: None

PATIENT
  Age: 87 Year
  Sex: Female
  Weight: 63.5 kg

DRUGS (8)
  1. CENTRUM SILVER [Concomitant]
     Active Substance: VITAMINS
  2. CALTRATE WITH VITAMIN D [Suspect]
     Active Substance: CALCIUM CARBONATE\VITAMIN D
  3. VITAMIN C [Concomitant]
     Active Substance: ASCORBIC ACID
  4. PROLIA [Suspect]
     Active Substance: DENOSUMAB
     Indication: OSTEOPOROSIS
     Dosage: 60 MG, 1 EVERY 6 MO. INJECTION
     Dates: start: 20150129, end: 20150129
  5. ASPIRIN. [Concomitant]
     Active Substance: ASPIRIN
  6. SIMVASTATIN. [Concomitant]
     Active Substance: SIMVASTATIN
  7. LISINOPRIL. [Concomitant]
     Active Substance: LISINOPRIL
  8. PRESERVISION AREDS2 [Concomitant]
     Route: 048

REACTIONS (1)
  - Hospitalisation [None]
